FAERS Safety Report 6338398-X (Version None)
Quarter: 2009Q3

REPORT INFORMATION
  Report Type: 
  Country: None (occurrence: None)
  Receive Date: 20090901
  Receipt Date: 20090820
  Transmission Date: 20100115
  Serious: Yes (Death)
  Sender: FDA-Public Use
  Company Number: 8050715

PATIENT
  Age: 27 Year
  Sex: Male

DRUGS (2)
  1. KEPPRA [Suspect]
     Dosage: IV
     Route: 042
  2. VIMPAT [Suspect]
     Dosage: IV
     Route: 042

REACTIONS (7)
  - ATAXIA [None]
  - GASTROINTESTINAL DISORDER [None]
  - INFLUENZA [None]
  - MYOCLONIC EPILEPSY [None]
  - MYOCLONUS [None]
  - SEPSIS [None]
  - STATUS EPILEPTICUS [None]
